FAERS Safety Report 8756422 (Version 3)
Quarter: 2013Q2

REPORT INFORMATION
  Report Type: Report from Study
  Country: JP (occurrence: JP)
  Receive Date: 20120828
  Receipt Date: 20130429
  Transmission Date: 20140414
  Serious: Yes (Hospitalization)
  Sender: FDA-Public Use
  Company Number: JP-009507513-1208JPN009659

PATIENT
  Age: 61 Year
  Sex: Female
  Weight: 55 kg

DRUGS (9)
  1. PEGINTRON [Suspect]
     Indication: CHRONIC HEPATITIS C
     Dosage: 1.5 MCG/KG/WEEK
     Route: 058
     Dates: start: 20120611, end: 20120618
  2. PEGINTRON [Suspect]
     Dosage: 1.5 MCG/KG/WEEK
     Route: 058
     Dates: start: 20121001
  3. REBETOL [Suspect]
     Indication: CHRONIC HEPATITIS C
     Dosage: 600 MG, QD
     Route: 048
     Dates: start: 20120611, end: 20120623
  4. REBETOL [Suspect]
     Dosage: 600 MG, QD
     Route: 048
     Dates: start: 20121001
  5. TELAVIC [Suspect]
     Indication: CHRONIC HEPATITIS C
     Dosage: 2250 MG, QD
     Route: 048
     Dates: start: 20120611, end: 20120623
  6. ALLELOCK [Concomitant]
     Indication: CHRONIC HEPATITIS C
     Dosage: 5 MG, BID
     Route: 048
     Dates: start: 20120611, end: 20120623
  7. ALLELOCK [Concomitant]
     Indication: DERMATITIS
     Dosage: 5 MG, QD
     Route: 048
     Dates: start: 20120618
  8. ALLOPURINOL [Concomitant]
     Indication: CHRONIC HEPATITIS C
     Dosage: 100 MG, BID
     Route: 048
     Dates: start: 20120613, end: 20120623
  9. ALLOPURINOL [Concomitant]
     Dosage: 100 MG, QD
     Route: 048
     Dates: start: 20120613, end: 20120703

REACTIONS (1)
  - Renal impairment [Recovering/Resolving]
